FAERS Safety Report 14723942 (Version 5)
Quarter: 2018Q4

REPORT INFORMATION
  Report Type: Not Available
  Country: US (occurrence: US)
  Receive Date: 20180405
  Receipt Date: 20181105
  Transmission Date: 20190204
  Serious: No
  Sender: FDA-Public Use
  Company Number: US-NEUROCRINE BIOSCIENCES INC.-2018NBI00341

PATIENT
  Age: 77 Year
  Sex: Male
  Weight: 87.17 kg

DRUGS (3)
  1. LORAZEPAM. [Concomitant]
     Active Substance: LORAZEPAM
  2. INGREZZA [Suspect]
     Active Substance: VALBENAZINE
     Indication: TARDIVE DYSKINESIA
     Route: 048
     Dates: start: 20180628, end: 20180630
  3. INGREZZA [Suspect]
     Active Substance: VALBENAZINE
     Route: 048
     Dates: start: 2018, end: 2018

REACTIONS (6)
  - Anxiety [Unknown]
  - Agitation [Unknown]
  - Confusional state [Unknown]
  - Nervousness [Unknown]
  - Akathisia [Unknown]
  - Fatigue [Unknown]

NARRATIVE: CASE EVENT DATE: 2018
